FAERS Safety Report 13911484 (Version 1)
Quarter: 2017Q3

REPORT INFORMATION
  Report Type: Spontaneous
  Country: US (occurrence: US)
  Receive Date: 20170828
  Receipt Date: 20170828
  Transmission Date: 20171127
  Serious: No
  Sender: FDA-Public Use
  Company Number: US-ROCHE-1141440

PATIENT
  Sex: Male

DRUGS (1)
  1. NUTROPIN AQ [Suspect]
     Active Substance: SOMATROPIN
     Indication: BODY HEIGHT BELOW NORMAL
     Route: 058
     Dates: start: 19970429

REACTIONS (7)
  - Pain in extremity [Recovered/Resolved]
  - Myalgia [Unknown]
  - Influenza [Unknown]
  - Decreased appetite [Unknown]
  - Weight decreased [Unknown]
  - Hypersensitivity [Recovered/Resolved]
  - Pyrexia [Unknown]
